FAERS Safety Report 5820123-X (Version None)
Quarter: 2008Q3

REPORT INFORMATION
  Report Type: 
  Country: None (occurrence: None)
  Receive Date: 20080721
  Receipt Date: 20080712
  Transmission Date: 20090109
  Serious: Yes (Other)
  Sender: FDA-Public Use
  Company Number: CHPA2008US11811

PATIENT
  Age: 21 Year
  Sex: Male
  Weight: 72.6 kg

DRUGS (1)
  1. EX-LAX MAX STR LAX PILLS SENNA (NCH) (SENNA GLYCOSIDES) (CA SALTS OF P [Suspect]
     Indication: CONSTIPATION
     Dosage: 50 MG, ONCE/SINGLE, ORAL
     Route: 048
     Dates: start: 20080711, end: 20080712

REACTIONS (1)
  - HAEMATOCHEZIA [None]
